FAERS Safety Report 5425406-3 (Version None)
Quarter: 2007Q3

REPORT INFORMATION
  Report Type: 
  Country: None (occurrence: None)
  Receive Date: 20070824
  Receipt Date: 20070801
  Transmission Date: 20080115
  Serious: No
  Sender: FDA-Public Use
  Company Number: US-BOEHRINGER INGELHEIM PHARMACEUTICALS, INC.-2007-BP-18464BP

PATIENT
  Age: 73 Year
  Sex: Female

DRUGS (2)
  1. MIRAPEX [Suspect]
     Indication: PARKINSON'S DISEASE
     Route: 048
  2. CARBIDOPA AND LEVODOPA [Concomitant]

REACTIONS (3)
  - HYPOKINESIA [None]
  - RESTLESS LEGS SYNDROME [None]
  - VISUAL ACUITY REDUCED [None]
